FAERS Safety Report 23103792 (Version 3)
Quarter: 2023Q4

REPORT INFORMATION
  Report Type: Spontaneous
  Country: US (occurrence: US)
  Receive Date: 20231025
  Receipt Date: 20231106
  Transmission Date: 20240110
  Serious: No
  Sender: FDA-Public Use
  Company Number: US-PFIZER INC-PV202300175042

PATIENT
  Age: 66 Year
  Sex: Female

DRUGS (2)
  1. IBRANCE [Suspect]
     Active Substance: PALBOCICLIB
     Dosage: 125 MG
  2. IBRANCE [Suspect]
     Active Substance: PALBOCICLIB
     Dosage: 75 MG, CYCLIC (TABLET DAILY FOR 21 DAYS THEN REST FOR 7 DAYS EVERY 28 DAY CYCLE)

REACTIONS (4)
  - Weight decreased [Unknown]
  - Feeding disorder [Recovered/Resolved]
  - Illness [Unknown]
  - Neoplasm progression [Unknown]
